FAERS Safety Report 8223780-6 (Version None)
Quarter: 2012Q1

REPORT INFORMATION
  Report Type: 
  Country: None (occurrence: None)
  Receive Date: 20120321
  Receipt Date: 20120321
  Transmission Date: 20120608
  Serious: Yes (Other)
  Sender: FDA-Public Use
  Company Number: None

PATIENT
  Age: 24 Year
  Sex: Female

DRUGS (5)
  1. GILENYA [Suspect]
     Indication: MULTIPLE SCLEROSIS
     Dosage: 0.5MG
     Route: 048
     Dates: start: 20111216, end: 20120311
  2. VITAMIN D [Concomitant]
  3. DAYQUIL [Concomitant]
  4. NYQUIL [Concomitant]
  5. ADDERRALL [Concomitant]
     Route: 048

REACTIONS (1)
  - CONVULSION [None]
